FAERS Safety Report 11370227 (Version 1)
Quarter: 2015Q3

REPORT INFORMATION
  Report Type: Spontaneous
  Country: CN (occurrence: CN)
  Receive Date: 20150812
  Receipt Date: 20150812
  Transmission Date: 20151125
  Serious: Yes (Other)
  Sender: FDA-Public Use
  Company Number: CN-BAYER-2015-392259

PATIENT
  Sex: Female

DRUGS (1)
  1. YASMIN [Suspect]
     Active Substance: DROSPIRENONE\ETHINYL ESTRADIOL
     Indication: MENSTRUAL CYCLE MANAGEMENT
     Dosage: UNK
     Route: 048
     Dates: start: 20150703, end: 20150707

REACTIONS (4)
  - Intentional product misuse [None]
  - Haemorrhage in pregnancy [None]
  - Exposure during pregnancy [None]
  - Medication error [None]

NARRATIVE: CASE EVENT DATE: 20150703
